FAERS Safety Report 11328256 (Version 1)
Quarter: 2015Q3

REPORT INFORMATION
  Report Type: Spontaneous
  Country: FR (occurrence: FR)
  Receive Date: 20150731
  Receipt Date: 20150731
  Transmission Date: 20151125
  Serious: Yes (Hospitalization)
  Sender: FDA-Public Use
  Company Number: PHHY2015FR089631

PATIENT
  Age: 71 Year
  Sex: Female

DRUGS (13)
  1. APRANAX [Suspect]
     Active Substance: NAPROXEN
     Indication: PRODUCT USED FOR UNKNOWN INDICATION
     Dosage: 550 MG, BID
     Route: 048
     Dates: start: 20150627, end: 20150628
  2. DAFALGAN [Suspect]
     Active Substance: ACETAMINOPHEN
     Indication: PRODUCT USED FOR UNKNOWN INDICATION
     Dosage: 1 G, TID
     Route: 048
     Dates: start: 20150627, end: 20150701
  3. THIOCOLCHICOSIDE SANDOZ [Suspect]
     Active Substance: THIOCOLCHICOSIDE
     Indication: PRODUCT USED FOR UNKNOWN INDICATION
     Dosage: 8 MG, QD
     Route: 048
     Dates: start: 20150629, end: 20150630
  4. TENSTATEN [Suspect]
     Active Substance: CICLETANINE HYDROCHLORIDE
     Indication: PRODUCT USED FOR UNKNOWN INDICATION
     Dosage: 100 MG, QD
     Route: 049
     Dates: end: 20150701
  5. LYRICA [Suspect]
     Active Substance: PREGABALIN
     Indication: PRODUCT USED FOR UNKNOWN INDICATION
     Dosage: 50 MG, TID
     Route: 048
     Dates: start: 20150629, end: 20150701
  6. ORAMORPH [Suspect]
     Active Substance: MORPHINE SULFATE
     Indication: PRODUCT USED FOR UNKNOWN INDICATION
     Route: 048
     Dates: start: 201506, end: 201506
  7. NIFLUGEL [Suspect]
     Active Substance: NIFLUMIC ACID
     Indication: NECK PAIN
     Route: 062
     Dates: start: 20150625, end: 20150626
  8. LOXEN//NICARDIPINE HYDROCHLORIDE [Suspect]
     Active Substance: NICARDIPINE HYDROCHLORIDE
     Indication: PRODUCT USED FOR UNKNOWN INDICATION
     Dosage: 50 MG, BID
     Route: 048
     Dates: start: 20150629, end: 20150701
  9. INEXIUM//ESOMEPRAZOLE MAGNESIUM [Suspect]
     Active Substance: ESOMEPRAZOLE MAGNESIUM
     Indication: PRODUCT USED FOR UNKNOWN INDICATION
     Dosage: 40 MG, QD
     Route: 048
     Dates: start: 20150627, end: 20150628
  10. TOPALGIC LP [Suspect]
     Active Substance: TRAMADOL
     Indication: PRODUCT USED FOR UNKNOWN INDICATION
     Dosage: 200 MG, QD
     Route: 048
     Dates: start: 20150627, end: 20150628
  11. NABUCOX [Suspect]
     Active Substance: NABUMETONE
     Indication: NECK PAIN
     Route: 048
     Dates: start: 20150625, end: 20150626
  12. LANSOPRAZOLE SANDOZ [Suspect]
     Active Substance: LANSOPRAZOLE
     Indication: NECK PAIN
     Route: 048
     Dates: start: 20150625, end: 20150626
  13. ACETAMINOPHEN AND CODEINE [Suspect]
     Active Substance: ACETAMINOPHEN\CODEINE PHOSPHATE
     Indication: NECK PAIN
     Route: 048
     Dates: start: 20150625, end: 20150626

REACTIONS (1)
  - Hyponatraemia [Recovered/Resolved]

NARRATIVE: CASE EVENT DATE: 20150701
